FAERS Safety Report 25850123 (Version 1)
Quarter: 2025Q3

REPORT INFORMATION
  Report Type: Spontaneous
  Country: US (occurrence: US)
  Receive Date: 20250926
  Receipt Date: 20250926
  Transmission Date: 20251021
  Serious: No
  Sender: AXSOME THERAPEUTICS
  Company Number: US-AXS-AXS202509-001633

PATIENT
  Age: 59 Year
  Sex: Male

DRUGS (1)
  1. AUVELITY [Suspect]
     Active Substance: BUPROPION HYDROCHLORIDE\DEXTROMETHORPHAN HYDROBROMIDE
     Indication: Depression
     Dosage: TAKE ONE TABLET 2 TIMES PER DAY SEPARATED BY 8 HOURS APART,
     Route: 048

REACTIONS (2)
  - Asthenia [Unknown]
  - Apathy [Unknown]
